FAERS Safety Report 13798242 (Version 1)
Quarter: 2017Q3

REPORT INFORMATION
  Report Type: Spontaneous
  Country: US (occurrence: US)
  Receive Date: 20170726
  Receipt Date: 20170726
  Transmission Date: 20171127
  Serious: Yes (Death)
  Sender: FDA-Public Use
  Company Number: None

PATIENT
  Age: 69 Year
  Sex: Male

DRUGS (1)
  1. WARFARIN [Suspect]
     Active Substance: WARFARIN
     Indication: ATRIAL FIBRILLATION
     Route: 048
     Dates: start: 20131211, end: 20170509

REACTIONS (3)
  - Haemorrhagic stroke [None]
  - Anticoagulation drug level above therapeutic [None]
  - Haemorrhage intracranial [None]

NARRATIVE: CASE EVENT DATE: 20170509
